FAERS Safety Report 18779481 (Version 1)
Quarter: 2021Q1

REPORT INFORMATION
  Report Type: Spontaneous
  Country: US (occurrence: US)
  Receive Date: 20210125
  Receipt Date: 20210125
  Transmission Date: 20210419
  Serious: No
  Sender: FDA-Public Use
  Company Number: US-TARO-2020TAR01719

PATIENT

DRUGS (3)
  1. KETOCONAZOLE CREAM 2% [Suspect]
     Active Substance: KETOCONAZOLE
     Indication: CYSTITIS
     Dosage: ONCE, A GOOD SCOOP ON TWO FRONT FINGERS AND PUT ALL OVER ^DOWN THERE^, BAR CODE: 51572 12982
     Route: 065
     Dates: start: 20201110, end: 20201110
  2. TRAMADOL. [Concomitant]
     Active Substance: TRAMADOL
     Indication: HEADACHE
     Dosage: UNK
     Route: 065
  3. KETOCONAZOLE CREAM 2% [Suspect]
     Active Substance: KETOCONAZOLE
     Indication: FUNGAL INFECTION

REACTIONS (1)
  - Burning sensation [Recovered/Resolved]

NARRATIVE: CASE EVENT DATE: 20201110
